FAERS Safety Report 15301362 (Version 2)
Quarter: 2018Q3

REPORT INFORMATION
  Report Type: Spontaneous
  Country: CN (occurrence: CN)
  Receive Date: 20180821
  Receipt Date: 20180828
  Transmission Date: 20181010
  Serious: Yes (Other)
  Sender: FDA-Public Use
  Company Number: CN-ASTRAZENECA-2018SE98567

PATIENT
  Age: 70 Year
  Sex: Female

DRUGS (1)
  1. IRESSA [Suspect]
     Active Substance: GEFITINIB
     Indication: LUNG NEOPLASM MALIGNANT
     Route: 048
     Dates: start: 20180710

REACTIONS (6)
  - Malignant neoplasm progression [Unknown]
  - Dyspnoea [Unknown]
  - Chest discomfort [Unknown]
  - Asthenia [Unknown]
  - Pyrexia [Unknown]
  - Haemoptysis [Unknown]
